FAERS Safety Report 5238275-1 (Version None)
Quarter: 2007Q1

REPORT INFORMATION
  Report Type: 
  Country: None (occurrence: None)
  Receive Date: 20070215
  Receipt Date: 20070209
  Transmission Date: 20070707
  Serious: Yes (Death, Hospitalization)
  Sender: FDA-Public Use
  Company Number: FR-AVENTIS-200311846FR

PATIENT
  Age: 90 Year
  Sex: Male
  Weight: 85 kg

DRUGS (4)
  1. KETEK [Suspect]
     Indication: BRONCHITIS
     Route: 048
     Dates: start: 20021023, end: 20021025
  2. KETEK [Suspect]
     Route: 048
     Dates: start: 20021023, end: 20021025
  3. EXOMUC [Concomitant]
  4. VIOXX [Concomitant]
     Route: 048
     Dates: start: 20021023, end: 20021027

REACTIONS (6)
  - DIPLOPIA [None]
  - DYSARTHRIA [None]
  - DYSPHAGIA [None]
  - EYELID PTOSIS [None]
  - INTESTINAL INFARCTION [None]
  - MYASTHENIA GRAVIS [None]
